FAERS Safety Report 4714224-7 (Version None)
Quarter: 2005Q3

REPORT INFORMATION
  Report Type: 
  Country: None (occurrence: None)
  Receive Date: 20050713
  Receipt Date: 20050713
  Transmission Date: 20060218
  Serious: Yes (Hospitalization)
  Sender: FDA-Public Use
  Company Number: None

PATIENT
  Age: 45 Year
  Sex: Female
  Weight: 83.9154 kg

DRUGS (4)
  1. BACLOFEN [Suspect]
     Indication: MUSCLE SPASTICITY
     Dates: start: 20050621, end: 20050712
  2. . [Concomitant]
  3. NEURONTIN [Concomitant]
  4. TYLENOL [Concomitant]

REACTIONS (2)
  - DIFFICULTY IN WALKING [None]
  - POST PROCEDURAL COMPLICATION [None]
